FAERS Safety Report 9104225 (Version 4)
Quarter: 2013Q2

REPORT INFORMATION
  Report Type: Spontaneous
  Country: JP (occurrence: JP)
  Receive Date: 20130219
  Receipt Date: 20130501
  Transmission Date: 20140414
  Serious: Yes (Hospitalization, Congenital Anomaly, Other)
  Sender: FDA-Public Use
  Company Number: PHHY2013JP015272

PATIENT
  Age: 7 Year
  Sex: Female
  Weight: 17 kg

DRUGS (2)
  1. TEGRETOL [Suspect]
     Indication: EPILEPSY
     Dosage: UNK UKN, UNK
     Route: 048
  2. CLONAZEPAM [Concomitant]
     Indication: RETT^S DISORDER
     Dosage: UNK UKN, UNK
     Route: 048

REACTIONS (5)
  - Respiration abnormal [Recovering/Resolving]
  - Cyanosis [Recovering/Resolving]
  - Crying [Recovered/Resolved]
  - Epilepsy [Recovered/Resolved]
  - Decreased appetite [Unknown]
